FAERS Safety Report 8557766-9 (Version None)
Quarter: 2012Q3

REPORT INFORMATION
  Report Type: 
  Country: None (occurrence: None)
  Receive Date: 20120801
  Receipt Date: 20120730
  Transmission Date: 20120928
  Serious: Yes (Death, Life-Threatening, Hospitalization)
  Sender: FDA-Public Use
  Company Number: DE-ABBOTT-12P-062-0961774-00

PATIENT
  Age: 84 Year

DRUGS (8)
  1. ERYPO [Concomitant]
     Indication: PRODUCT USED FOR UNKNOWN INDICATION
     Dosage: 6000 I.E. /WEEK
  2. ZEMPLAR [Suspect]
     Indication: PRODUCT USED FOR UNKNOWN INDICATION
  3. SIMVASTATIN [Concomitant]
     Indication: PRODUCT USED FOR UNKNOWN INDICATION
     Dosage: 20 MG /DAY
     Route: 048
     Dates: start: 20110709
  4. FRRLECIT [Concomitant]
     Indication: PRODUCT USED FOR UNKNOWN INDICATION
  5. CREON [Concomitant]
     Indication: PRODUCT USED FOR UNKNOWN INDICATION
     Dosage: 4 CAPSULES A DAY
     Route: 048
     Dates: start: 20110709
  6. ASPIRIN [Concomitant]
     Indication: PRODUCT USED FOR UNKNOWN INDICATION
     Dosage: 100 MG /DAY
     Route: 048
     Dates: start: 20110709
  7. PANTOPRAZOLE [Concomitant]
     Indication: PRODUCT USED FOR UNKNOWN INDICATION
     Dosage: 40 MG /DAY
     Route: 048
     Dates: start: 20110709
  8. FOSRENOL [Concomitant]
     Indication: PRODUCT USED FOR UNKNOWN INDICATION
     Route: 048
     Dates: start: 20110806

REACTIONS (6)
  - GENERAL PHYSICAL HEALTH DETERIORATION [None]
  - DYSPNOEA EXERTIONAL [None]
  - CORONARY ARTERY DISEASE [None]
  - MYOCARDIAL INFARCTION [None]
  - ASTHENIA [None]
  - FALL [None]
